FAERS Safety Report 4855272-6 (Version None)
Quarter: 2005Q4

REPORT INFORMATION
  Report Type: 
  Country: None (occurrence: None)
  Receive Date: 20051215
  Receipt Date: 20050222
  Transmission Date: 20060501
  Serious: Yes (Life-Threatening, Hospitalization, Disabling)
  Sender: FDA-Public Use
  Company Number: US-MERCK-0502USA03486

PATIENT
  Age: 66 Year
  Sex: Male
  Weight: 77 kg

DRUGS (4)
  1. VIOXX [Suspect]
     Indication: ARTHRITIS
     Route: 048
     Dates: start: 20010101, end: 20040101
  2. DARVOCET-N 100 [Concomitant]
     Route: 048
  3. ACCUPRIL [Concomitant]
     Route: 048
  4. CELEBREX [Concomitant]
     Route: 048

REACTIONS (3)
  - ADVERSE EVENT [None]
  - DIZZINESS [None]
  - MYOCARDIAL INFARCTION [None]
